FAERS Safety Report 16423113 (Version 4)
Quarter: 2020Q2

REPORT INFORMATION
  Report Type: Spontaneous
  Country: US (occurrence: US)
  Receive Date: 20190612
  Receipt Date: 20200508
  Transmission Date: 20200713
  Serious: Yes (Other)
  Sender: FDA-Public Use
  Company Number: US-COVIS PHARMA B.V.-2018COV03700

PATIENT
  Age: 77 Year
  Sex: Male
  Weight: 94.79 kg

DRUGS (14)
  1. SIMVASTATIN. [Concomitant]
     Active Substance: SIMVASTATIN
     Dosage: 20 MG
  2. BYDUREON [Suspect]
     Active Substance: EXENATIDE
     Indication: BLOOD GLUCOSE INCREASED
     Dosage: 2 MG, 1X/WEEK
     Route: 058
     Dates: start: 20180411
  3. BYDUREON [Suspect]
     Active Substance: EXENATIDE
     Indication: BLOOD GLUCOSE DECREASED
  4. LABETALOL [Concomitant]
     Active Substance: LABETALOL\LABETALOL HYDROCHLORIDE
     Indication: BLOOD PRESSURE MEASUREMENT
     Dosage: 300 MG
     Route: 048
  5. GABAPENTIN. [Concomitant]
     Active Substance: GABAPENTIN
     Indication: OSTEOARTHRITIS
  6. VENLAFAXINE [Concomitant]
     Active Substance: VENLAFAXINE HYDROCHLORIDE
  7. TERAZOSIN [Concomitant]
     Active Substance: TERAZOSIN HYDROCHLORIDE
     Dosage: 10 MG
  8. OMEPRAZOLE MAGNESIUM. [Suspect]
     Active Substance: OMEPRAZOLE MAGNESIUM
     Indication: GASTROINTESTINAL DISORDER
     Route: 048
  9. GABAPENTIN. [Concomitant]
     Active Substance: GABAPENTIN
     Indication: PAIN
     Dosage: 600 MG
     Route: 048
  10. LISINOPRIL. [Suspect]
     Active Substance: LISINOPRIL
     Dosage: 20 MG, 2X/DAY
     Route: 048
  11. MELOXICAM. [Concomitant]
     Active Substance: MELOXICAM
     Dosage: 15 MG
  12. BYDUREON [Suspect]
     Active Substance: EXENATIDE
     Indication: TYPE 2 DIABETES MELLITUS
  13. FLU SHOT [Suspect]
     Active Substance: INFLUENZA VIRUS VACCINE
     Dosage: UNK
  14. ASPIRIN. [Concomitant]
     Active Substance: ASPIRIN
     Dosage: 325 MG

REACTIONS (30)
  - Injection site haemorrhage [Unknown]
  - Sleep apnoea syndrome [Unknown]
  - Malaise [Recovering/Resolving]
  - Unevaluable event [Unknown]
  - Nervous system disorder [Unknown]
  - Oropharyngeal pain [Unknown]
  - Blister [Unknown]
  - Limb discomfort [Unknown]
  - Blood pressure systolic increased [Unknown]
  - Injection site extravasation [Unknown]
  - Blood glucose increased [Not Recovered/Not Resolved]
  - Injection site mass [Unknown]
  - Abdominal discomfort [Recovering/Resolving]
  - Benign prostatic hyperplasia [Unknown]
  - Haematoma [Unknown]
  - Back pain [Unknown]
  - Nausea [Recovering/Resolving]
  - Injection site pain [Recovered/Resolved]
  - Osteoarthritis [Not Recovered/Not Resolved]
  - Altered state of consciousness [Recovered/Resolved]
  - Weight decreased [Unknown]
  - Herpes zoster [Not Recovered/Not Resolved]
  - Pain in extremity [Unknown]
  - Nervousness [Unknown]
  - Malignant melanoma [Unknown]
  - Headache [Recovering/Resolving]
  - Knee operation [Unknown]
  - Hypoaesthesia [Unknown]
  - Snoring [Unknown]
  - Injection site nodule [Unknown]

NARRATIVE: CASE EVENT DATE: 2018
